FAERS Safety Report 6342009-7 (Version None)
Quarter: 2009Q3

REPORT INFORMATION
  Report Type: 
  Country: None (occurrence: None)
  Receive Date: 20090904
  Receipt Date: 20090813
  Transmission Date: 20100115
  Serious: Yes (Hospitalization)
  Sender: FDA-Public Use
  Company Number: PL-MERCK-0908POL00010

PATIENT
  Age: 23 Year
  Sex: Male

DRUGS (2)
  1. SINGULAIR [Suspect]
     Indication: ASTHMA
     Route: 065
  2. CORTICOSTEROIDS (UNSPECIFIED) [Concomitant]
     Indication: ASTHMA
     Route: 065

REACTIONS (1)
  - ALLERGIC GRANULOMATOUS ANGIITIS [None]
